FAERS Safety Report 4362630-5 (Version None)
Quarter: 2004Q2

REPORT INFORMATION
  Report Type: 
  Country: None (occurrence: None)
  Receive Date: 20040520
  Receipt Date: 20040507
  Transmission Date: 20050107
  Serious: Yes (Death)
  Sender: FDA-Public Use
  Company Number: NSADSS2003025035

PATIENT
  Age: 85 Year
  Sex: Female
  Weight: 75.2971 kg

DRUGS (6)
  1. DITROPAN XL [Suspect]
     Indication: HYPERTONIC BLADDER
     Dosage: SEE IMAGE
     Route: 048
     Dates: start: 20010101
  2. PAXIL [Concomitant]
  3. LORAZEPAM [Concomitant]
  4. ARTHROTEC [Concomitant]
  5. SYNTHROID [Concomitant]
  6. VALIUM [Concomitant]

REACTIONS (1)
  - CARDIAC FAILURE [None]
